FAERS Safety Report 17406108 (Version 1)
Quarter: 2020Q1

REPORT INFORMATION
  Report Type: Report from Study
  Country: US (occurrence: US)
  Receive Date: 20200212
  Receipt Date: 20200212
  Transmission Date: 20200409
  Serious: Yes (Hospitalization, Other)
  Sender: FDA-Public Use
  Company Number: US-SA-2019SA014512

PATIENT
  Age: 35 Year
  Sex: Female

DRUGS (3)
  1. BENADRYL [Concomitant]
     Active Substance: DIPHENHYDRAMINE HYDROCHLORIDE
     Dosage: 2 DF
     Route: 065
  2. ALEMTUZUMAB [Suspect]
     Active Substance: ALEMTUZUMAB
     Indication: MULTIPLE SCLEROSIS
     Dosage: UNK, QD
     Route: 041
     Dates: start: 20190114, end: 20190118
  3. TYLENOL [Concomitant]
     Active Substance: ACETAMINOPHEN
     Dosage: 2 DF
     Route: 065

REACTIONS (28)
  - Immune thrombocytopenic purpura [Unknown]
  - Platelet count decreased [Unknown]
  - Hyperthyroidism [Unknown]
  - Urticaria [Unknown]
  - Chest pain [Unknown]
  - Pruritus [Unknown]
  - Heart rate increased [Unknown]
  - Gait disturbance [Unknown]
  - Palpitations [Unknown]
  - Headache [Unknown]
  - Migraine [Unknown]
  - Nausea [Unknown]
  - Chest discomfort [Unknown]
  - Dyspnoea [Not Recovered/Not Resolved]
  - Eye disorder [Unknown]
  - Feeling hot [Unknown]
  - Drug hypersensitivity [Unknown]
  - Dermatitis contact [Unknown]
  - Fatigue [Unknown]
  - Dehydration [Unknown]
  - Unevaluable event [Unknown]
  - Condition aggravated [Unknown]
  - Abdominal discomfort [Unknown]
  - Pain in extremity [Unknown]
  - Rash macular [Unknown]
  - Fallopian tube disorder [Unknown]
  - Pain [Unknown]
  - Presyncope [Unknown]

NARRATIVE: CASE EVENT DATE: 2019
